FAERS Safety Report 8477634-0 (Version None)
Quarter: 2012Q2

REPORT INFORMATION
  Report Type: 
  Country: None (occurrence: None)
  Receive Date: 20120620
  Receipt Date: 20120604
  Transmission Date: 20120825
  Serious: Yes (Other)
  Sender: FDA-Public Use
  Company Number: DSA_57658_2012

PATIENT
  Sex: Female

DRUGS (1)
  1. NIFEDIAC CC 90 MG (NOT SPECIFIED) [Suspect]
     Indication: PRODUCT USED FOR UNKNOWN INDICATION
     Dosage: (DF)
     Dates: start: 20060101

REACTIONS (1)
  - PLATELET COUNT DECREASED [None]
